FAERS Safety Report 8534388-7 (Version None)
Quarter: 2012Q3

REPORT INFORMATION
  Report Type: 
  Country: None (occurrence: None)
  Receive Date: 20120724
  Receipt Date: 20120719
  Transmission Date: 20120928
  Serious: Yes (Hospitalization, Other)
  Sender: FDA-Public Use
  Company Number: PHHY2012BR054406

PATIENT
  Sex: Female

DRUGS (3)
  1. DIOVAN HCT [Suspect]
     Indication: HYPERTENSION
     Dosage: 2 DF (160/12.5 MG), A DAY
     Route: 048
  2. ASPIRIN C [Concomitant]
     Indication: ANTICOAGULANT THERAPY
     Dosage: 1 DF, DAILY
     Route: 048
  3. SIMVASTATIN [Concomitant]
     Dosage: 20 MG, ONE TABLET AT NIGHT
     Route: 048

REACTIONS (5)
  - CEREBROVASCULAR ACCIDENT [None]
  - MALAISE [None]
  - FALL [None]
  - SYNCOPE [None]
  - MUSCLE SPASMS [None]
